FAERS Safety Report 7319457-1 (Version None)
Quarter: 2011Q1

REPORT INFORMATION
  Report Type: 
  Country: None (occurrence: None)
  Receive Date: 20110228
  Receipt Date: 20100401
  Transmission Date: 20110831
  Serious: No
  Sender: FDA-Public Use
  Company Number: A0852987A

PATIENT
  Age: 57 Year
  Sex: Female

DRUGS (5)
  1. MULTI-VITAMIN [Concomitant]
  2. LEVOTHYROXINE SODIUM [Concomitant]
  3. LAMOTRIGINE [Suspect]
     Indication: BIPOLAR DISORDER
     Dosage: 25MG PER DAY
     Route: 048
     Dates: start: 20100127, end: 20100301
  4. VALERIAN ROOT [Concomitant]
  5. NAPROSYN [Concomitant]

REACTIONS (4)
  - PAIN [None]
  - LACRIMATION DECREASED [None]
  - VISION BLURRED [None]
  - POOR QUALITY SLEEP [None]
